FAERS Safety Report 24030497 (Version 1)
Quarter: 2024Q2

REPORT INFORMATION
  Report Type: Spontaneous
  Country: US (occurrence: None)
  Receive Date: 20240627
  Receipt Date: 20240627
  Transmission Date: 20240716
  Serious: No
  Sender: FDA-Public Use
  Company Number: None

PATIENT
  Age: 51 Year
  Sex: Female
  Weight: 109 kg

DRUGS (1)
  1. COSENTYX [Suspect]
     Active Substance: SECUKINUMAB
     Indication: Ankylosing spondylitis
     Dosage: 150 MG/ML EVERY 4 WEEKS SUBCUTANEOUS?
     Route: 058
     Dates: start: 20240524

REACTIONS (5)
  - Feeling abnormal [None]
  - Arthralgia [None]
  - Joint swelling [None]
  - Muscle spasms [None]
  - Migraine [None]

NARRATIVE: CASE EVENT DATE: 20240524
